FAERS Safety Report 6299195-7 (Version None)
Quarter: 2009Q3

REPORT INFORMATION
  Report Type: 
  Country: None (occurrence: None)
  Receive Date: 20090806
  Receipt Date: 20070504
  Transmission Date: 20100115
  Serious: Yes (Other)
  Sender: FDA-Public Use
  Company Number: US-ASTRAZENECA-2006UW26165

PATIENT
  Age: 35 Year
  Sex: Female
  Weight: 75.3 kg

DRUGS (17)
  1. SEROQUEL [Suspect]
     Indication: BIPOLAR DISORDER
     Dosage: 300 MG
     Route: 048
     Dates: end: 20030101
  2. SEROQUEL [Suspect]
     Indication: AFFECTIVE DISORDER
     Dosage: 300 MG
     Route: 048
     Dates: end: 20030101
  3. SEROQUEL [Suspect]
     Dosage: 25-500 MG
     Route: 048
     Dates: start: 20040304, end: 20060515
  4. SEROQUEL [Suspect]
     Dosage: 25-500 MG
     Route: 048
     Dates: start: 20040304, end: 20060515
  5. RISPERDAL [Concomitant]
  6. LEXAPRO [Concomitant]
     Dates: start: 20051028
  7. SYNTHROID [Concomitant]
     Dates: start: 20040531
  8. LAMICTAL [Concomitant]
     Route: 048
     Dates: start: 20060509
  9. XANAX [Concomitant]
     Route: 048
     Dates: start: 20041007
  10. AMANTADINE HCL [Concomitant]
     Indication: AKATHISIA
     Dosage: 100 MG, AM AND BEDTIME
     Route: 048
     Dates: start: 20060509
  11. NEURONTIN [Concomitant]
     Dosage: 300-1800 MG
     Dates: start: 20040112
  12. LISINOPRIL AND HYDROCHLOROTHIAZIDE [Concomitant]
     Dosage: 10/12.5
     Dates: start: 20040112
  13. KLONOPIN [Concomitant]
     Indication: ANXIETY
     Dates: start: 20060507
  14. CYMBALTA [Concomitant]
     Indication: HEADACHE
     Dosage: 30-90 MG
     Dates: start: 20040409, end: 20060509
  15. HYDROCHLOROTHIAZIDE [Concomitant]
     Dates: start: 20040304
  16. PROTONIX [Concomitant]
     Dates: start: 20050413
  17. LISINOPRIL [Concomitant]
     Route: 048
     Dates: start: 20040112

REACTIONS (11)
  - CELLULITIS [None]
  - CLAVICLE FRACTURE [None]
  - DIABETES MELLITUS INADEQUATE CONTROL [None]
  - DIABETIC COMA [None]
  - DIABETIC FOOT [None]
  - DIABETIC KETOACIDOSIS [None]
  - DIABETIC NEUROPATHY [None]
  - HYPERGLYCAEMIA [None]
  - KIDNEY INFECTION [None]
  - TYPE 1 DIABETES MELLITUS [None]
  - TYPE 2 DIABETES MELLITUS [None]
